FAERS Safety Report 7225323-2 (Version None)
Quarter: 2011Q1

REPORT INFORMATION
  Report Type: 
  Country: None (occurrence: None)
  Receive Date: 20110104
  Receipt Date: 20101221
  Transmission Date: 20110831
  Serious: Yes (Hospitalization)
  Sender: FDA-Public Use
  Company Number: 016791

PATIENT
  Sex: Female
  Weight: 52.8 kg

DRUGS (10)
  1. ETODOLAC [Concomitant]
  2. SOFALCONE [Concomitant]
  3. PREDNISOLONE [Suspect]
     Indication: RHEUMATOID ARTHRITIS
     Dosage: 2.5 MG ORAL
     Route: 048
     Dates: start: 19981218
  4. METHOTREXATE [Suspect]
     Indication: RHEUMATOID ARTHRITIS
     Dosage: (6 MG (4 MG - 2 MG) /WEEK ORAL)
     Route: 048
     Dates: start: 20090613
  5. KETOPROFEN [Concomitant]
  6. CIMZIA [Suspect]
     Indication: RHEUMATOID ARTHRITIS
     Dosage: (400 MG 1X/2 WEEKS, C87041 SUBCUTANEOUS) (400 MG 1X/2 WEEKS, C87041 SUBCUTANEOUS) (400 MG 1X/4 WEEKS
     Route: 058
     Dates: start: 20100421, end: 20100715
  7. CIMZIA [Suspect]
     Indication: RHEUMATOID ARTHRITIS
     Dosage: (400 MG 1X/2 WEEKS, C87041 SUBCUTANEOUS) (400 MG 1X/2 WEEKS, C87041 SUBCUTANEOUS) (400 MG 1X/4 WEEKS
     Route: 058
     Dates: start: 20091007, end: 20091101
  8. CIMZIA [Suspect]
     Indication: RHEUMATOID ARTHRITIS
     Dosage: (400 MG 1X/2 WEEKS, C87041 SUBCUTANEOUS) (400 MG 1X/2 WEEKS, C87041 SUBCUTANEOUS) (400 MG 1X/4 WEEKS
     Route: 058
     Dates: start: 20091101, end: 20100408
  9. ISONIAZID [Concomitant]
  10. FELBINAC [Concomitant]

REACTIONS (17)
  - POST PROCEDURAL COMPLICATION [None]
  - DIZZINESS [None]
  - CEREBROVASCULAR SPASM [None]
  - PROTHROMBIN TIME SHORTENED [None]
  - VOMITING [None]
  - CEREBELLAR ATROPHY [None]
  - CEREBRAL ISCHAEMIA [None]
  - BLOOD PRESSURE INCREASED [None]
  - ACTIVATED PARTIAL THROMBOPLASTIN TIME PROLONGED [None]
  - ARTHRALGIA [None]
  - MUSCULOSKELETAL STIFFNESS [None]
  - BRAIN CONTUSION [None]
  - RUPTURED CEREBRAL ANEURYSM [None]
  - MENINGITIS [None]
  - HEADACHE [None]
  - NORMAL PRESSURE HYDROCEPHALUS [None]
  - SUBARACHNOID HAEMORRHAGE [None]
